FAERS Safety Report 4860762-6 (Version None)
Quarter: 2005Q4

REPORT INFORMATION
  Report Type: 
  Country: None (occurrence: None)
  Receive Date: 20051216
  Receipt Date: 20051212
  Transmission Date: 20060501
  Serious: Yes (Other)
  Sender: FDA-Public Use
  Company Number: 13044

PATIENT
  Age: 42 Year
  Sex: Female

DRUGS (3)
  1. CARBOPLATIN [Suspect]
     Dosage: 280 MG WEEKLY IV
     Route: 042
     Dates: start: 20051014, end: 20051014
  2. DEXAMETHASONE [Concomitant]
  3. DOLASETRON MESYLATE [Concomitant]

REACTIONS (3)
  - ERYTHEMA [None]
  - FEELING HOT [None]
  - MALAISE [None]
